FAERS Safety Report 4434008-7 (Version None)
Quarter: 2004Q3

REPORT INFORMATION
  Report Type: 
  Country: None (occurrence: None)
  Receive Date: 20040825
  Receipt Date: 20040811
  Transmission Date: 20050211
  Serious: Yes (Hospitalization)
  Sender: FDA-Public Use
  Company Number: S04-USA-01889-01

PATIENT
  Age: 29 Year
  Sex: Female

DRUGS (6)
  1. LEXAPRO [Suspect]
     Indication: DEPRESSION
     Dosage: 10 MG QD PO
     Route: 048
     Dates: start: 20040201, end: 20040327
  2. LEXAPRO [Suspect]
     Indication: DEPRESSION
     Dosage: 10 MG QD PO
     Route: 048
     Dates: start: 20040330, end: 20040101
  3. NEURONTIN [Concomitant]
  4. GLUCOTROL [Concomitant]
  5. COPAXONE [Concomitant]
  6. NONSTEROIDAL ANTIINFLAMMATORY [Concomitant]

REACTIONS (12)
  - ABDOMINAL TENDERNESS [None]
  - BACK PAIN [None]
  - CERULOPLASMIN INCREASED [None]
  - CONDITION AGGRAVATED [None]
  - DRUG EFFECT DECREASED [None]
  - HEPATIC STEATOSIS [None]
  - HEPATITIS TOXIC [None]
  - HEPATOTOXICITY [None]
  - HYPOAESTHESIA [None]
  - MUSCULOSKELETAL DISCOMFORT [None]
  - NAUSEA [None]
  - URINARY TRACT INFECTION [None]
